FAERS Safety Report 4866415-2 (Version None)
Quarter: 2005Q4

REPORT INFORMATION
  Report Type: 
  Country: None (occurrence: None)
  Receive Date: 20051227
  Receipt Date: 20051005
  Transmission Date: 20060501
  Serious: Yes (Other)
  Sender: FDA-Public Use
  Company Number: US-MERCK-0510USA05356

PATIENT
  Age: 60 Year
  Sex: Female

DRUGS (6)
  1. VIOXX [Suspect]
     Indication: ARTHRITIS
     Route: 048
     Dates: start: 20030601, end: 20040801
  2. ZOCOR [Concomitant]
     Route: 065
  3. ATENOLOL [Concomitant]
     Route: 065
  4. COZAAR [Concomitant]
     Route: 065
  5. BENICAR [Concomitant]
     Route: 065
  6. TRAMADOL HYDROCHLORIDE [Concomitant]
     Route: 065

REACTIONS (4)
  - CARDIOVASCULAR DISORDER [None]
  - CAROTID ARTERY STENOSIS [None]
  - HYPERLIPIDAEMIA [None]
  - ISCHAEMIC STROKE [None]
